FAERS Safety Report 17500752 (Version 1)
Quarter: 2020Q1

REPORT INFORMATION
  Report Type: Spontaneous
  Country: DE (occurrence: DE)
  Receive Date: 20200305
  Receipt Date: 20200305
  Transmission Date: 20200409
  Serious: Yes (Other)
  Sender: FDA-Public Use
  Company Number: NVSC2020DE061029

PATIENT
  Age: 43 Year
  Sex: Male

DRUGS (13)
  1. CYCLOPHOSPHAMIDE. [Concomitant]
     Active Substance: CYCLOPHOSPHAMIDE
     Indication: B PRECURSOR TYPE ACUTE LEUKAEMIA
  2. DEXAMETHASONE. [Concomitant]
     Active Substance: DEXAMETHASONE
     Indication: B PRECURSOR TYPE ACUTE LEUKAEMIA
     Dosage: UNK, CYCLIC
     Route: 065
  3. ANTITHYMOCYTE IMMUNOGLOBULIN [Concomitant]
     Active Substance: THYMOCYTE IMMUNE GLOBULIN NOS
     Indication: BONE MARROW CONDITIONING REGIMEN
     Dosage: UNK
     Route: 065
  4. BLINATUMOMAB [Concomitant]
     Active Substance: BLINATUMOMAB
     Indication: B PRECURSOR TYPE ACUTE LEUKAEMIA
     Dosage: UNK UNK, CYCLIC
     Route: 065
  5. DOXORUBICIN [Concomitant]
     Active Substance: DOXORUBICIN
     Indication: B PRECURSOR TYPE ACUTE LEUKAEMIA
     Dosage: UNK UNK, CYCLIC
     Route: 065
  6. VINCRISTINE [Concomitant]
     Active Substance: VINCRISTINE
     Indication: B PRECURSOR TYPE ACUTE LEUKAEMIA
     Dosage: UNK UNK, CYCLIC
     Route: 065
  7. CASPOFUNGIN [Suspect]
     Active Substance: CASPOFUNGIN
     Indication: APLASIA
     Dosage: UNK
     Route: 065
  8. VORICONAZOLE. [Suspect]
     Active Substance: VORICONAZOLE
     Indication: TRANSPLANT FAILURE
  9. POSACONAZOLE [Suspect]
     Active Substance: POSACONAZOLE
     Indication: APLASIA
     Dosage: UNK
     Route: 065
  10. POSACONAZOLE [Suspect]
     Active Substance: POSACONAZOLE
     Indication: TRANSPLANT FAILURE
  11. VORICONAZOLE. [Suspect]
     Active Substance: VORICONAZOLE
     Indication: APLASIA
     Dosage: UNK
     Route: 065
  12. CYCLOPHOSPHAMIDE. [Concomitant]
     Active Substance: CYCLOPHOSPHAMIDE
     Indication: BONE MARROW CONDITIONING REGIMEN
     Dosage: UNK, CYCLIC
     Route: 065
  13. CASPOFUNGIN [Suspect]
     Active Substance: CASPOFUNGIN
     Indication: TRANSPLANT FAILURE

REACTIONS (2)
  - Drug ineffective [Unknown]
  - Cytomegalovirus infection [Recovering/Resolving]
